FAERS Safety Report 9464293 (Version 1)
Quarter: 2013Q3

REPORT INFORMATION
  Report Type: Spontaneous
  Country: US (occurrence: US)
  Receive Date: 20130819
  Receipt Date: 20130819
  Transmission Date: 20140515
  Serious: Yes (Hospitalization)
  Sender: FDA-Public Use
  Company Number: US-PFIZER INC-2013237816

PATIENT
  Age: 45 Year
  Sex: Female

DRUGS (2)
  1. CABERGOLINE [Suspect]
     Indication: HYPERPROLACTINAEMIA
     Dosage: 0.5 MG, WEEKLY
     Route: 048
  2. MULTIVITAMINS [Concomitant]
     Dosage: DAILY

REACTIONS (2)
  - Mania [Recovered/Resolved]
  - Drug ineffective [Unknown]
